FAERS Safety Report 18521488 (Version 1)
Quarter: 2020Q4

REPORT INFORMATION
  Report Type: Spontaneous
  Country: US (occurrence: US)
  Receive Date: 20201118
  Receipt Date: 20201118
  Transmission Date: 20210114
  Serious: Yes (Hospitalization)
  Sender: FDA-Public Use
  Company Number: None

PATIENT
  Sex: Male

DRUGS (1)
  1. ENTECAVIR 1MG  TEVA PHARMACEUTICALS USA [Suspect]
     Active Substance: ENTECAVIR
     Indication: CHRONIC HEPATITIS B
     Route: 048
     Dates: start: 20200904

REACTIONS (4)
  - Diarrhoea [None]
  - Intestinal mass [None]
  - Bowel movement irregularity [None]
  - Gastrointestinal oedema [None]
